FAERS Safety Report 4876291-X (Version None)
Quarter: 2005Q4

REPORT INFORMATION
  Report Type: 
  Country: None (occurrence: None)
  Receive Date: 20051206
  Receipt Date: 20050811
  Transmission Date: 20060501
  Serious: No
  Sender: FDA-Public Use
  Company Number: USA0508105178

PATIENT
  Age: 75 Year
  Sex: Female

DRUGS (15)
  1. CYMBALTA [Suspect]
     Indication: ARTHRITIS
     Dosage: 60 MG DAY
     Dates: start: 20050804
  2. MICROHYDRIN [Concomitant]
  3. NEURONTIN [Concomitant]
  4. ASCORBIC ACID [Concomitant]
  5. GLUCOSAMINE W/ CHONDROITIN [Concomitant]
  6. CITRACAL (CALCIUM CITRATE) [Concomitant]
  7. HALCION [Concomitant]
  8. COENZYME Q10 [Concomitant]
  9. ECOTRIN (ACETYLSALICYLIC ACID) [Concomitant]
  10. FOLVITE (FOLIC ACID) [Concomitant]
  11. ESTRACE [Concomitant]
  12. PREVACID [Concomitant]
  13. VASERETIC [Concomitant]
  14. TYLENOL ARTHRITIS (PARACETAMOL) [Concomitant]
  15. BENADRYL [Concomitant]

REACTIONS (4)
  - HOT FLUSH [None]
  - INSOMNIA [None]
  - JOINT SWELLING [None]
  - LIP PAIN [None]
